FAERS Safety Report 5562369-4 (Version None)
Quarter: 2007Q4

REPORT INFORMATION
  Report Type: 
  Country: None (occurrence: None)
  Receive Date: 20071215
  Receipt Date: 20070906
  Transmission Date: 20080405
  Serious: No
  Sender: FDA-Public Use
  Company Number: US-AMGEN-KDL238204

PATIENT
  Sex: Male
  Weight: 71.8 kg

DRUGS (2)
  1. PROCRIT [Suspect]
     Indication: ANAEMIA OF MALIGNANT DISEASE
     Route: 058
     Dates: start: 20070628
  2. ARANESP [Suspect]

REACTIONS (3)
  - HEADACHE [None]
  - MALAISE [None]
  - PYREXIA [None]
